FAERS Safety Report 6208212-1 (Version None)
Quarter: 2009Q2

REPORT INFORMATION
  Report Type: 
  Country: None (occurrence: None)
  Receive Date: 20090529
  Receipt Date: 20090519
  Transmission Date: 20091009
  Serious: Yes (Other)
  Sender: FDA-Public Use
  Company Number: US-JNJFOC-20090504499

PATIENT
  Sex: Male
  Weight: 65.77 kg

DRUGS (12)
  1. DOXIL [Suspect]
     Indication: HODGKIN'S DISEASE
     Dosage: OVER HALF AN HOUR. FIRST CYCLE
     Route: 042
  2. TYLENOL [Concomitant]
     Indication: PREMEDICATION
  3. HYDROCORTISONE [Concomitant]
     Indication: PREMEDICATION
  4. ZOFRAN [Concomitant]
     Indication: PREMEDICATION
  5. DECADRON [Concomitant]
     Indication: PREMEDICATION
  6. VINORELBINE [Concomitant]
  7. COUMADIN [Concomitant]
  8. ACYCLOVIR [Concomitant]
  9. BACTRIM [Concomitant]
     Dosage: SATURDAY AND SUNDAY
     Route: 048
  10. NOROXIN [Concomitant]
  11. GEMZAR [Concomitant]
  12. BENADRYL [Concomitant]
     Indication: PREMEDICATION
     Route: 042

REACTIONS (4)
  - BRONCHOSPASM [None]
  - DYSPNOEA [None]
  - INFUSION RELATED REACTION [None]
  - PARAESTHESIA [None]
